FAERS Safety Report 6748696-3 (Version None)
Quarter: 2010Q2

REPORT INFORMATION
  Report Type: 
  Country: None (occurrence: None)
  Receive Date: 20100601
  Receipt Date: 20100517
  Transmission Date: 20101027
  Serious: Yes (Hospitalization)
  Sender: FDA-Public Use
  Company Number: PHHY2010JP22066

PATIENT
  Age: 60 Year
  Sex: Female

DRUGS (2)
  1. FEMARA [Suspect]
     Indication: BREAST CANCER
     Dosage: 2.5 MG, DAILY
     Route: 048
     Dates: start: 20100222
  2. ZOMETA [Suspect]
     Indication: HYPERCALCAEMIA
     Dosage: UNK
     Route: 042
     Dates: start: 20100415

REACTIONS (7)
  - ARTHRALGIA [None]
  - BLOOD CALCIUM INCREASED [None]
  - BLOOD POTASSIUM DECREASED [None]
  - HYPERCALCAEMIA [None]
  - HYPOCALCAEMIA [None]
  - NAUSEA [None]
  - VOMITING [None]
